FAERS Safety Report 10271919 (Version 2)
Quarter: 2014Q3

REPORT INFORMATION
  Report Type: Report from Study
  Country: DK (occurrence: DK)
  Receive Date: 20140702
  Receipt Date: 20140704
  Transmission Date: 20150326
  Serious: Yes (Other)
  Sender: FDA-Public Use
  Company Number: PHHO2014DK008922

PATIENT

DRUGS (1)
  1. CGS 20267 [Suspect]
     Active Substance: LETROZOLE
     Indication: BREAST CANCER
     Dosage: 2.5 MG, QD
     Route: 048
     Dates: start: 20120330, end: 20121225

REACTIONS (2)
  - Second primary malignancy [Recovered/Resolved with Sequelae]
  - Endometrial cancer [Recovered/Resolved with Sequelae]

NARRATIVE: CASE EVENT DATE: 20140519
